FAERS Safety Report 8134169-2 (Version None)
Quarter: 2012Q1

REPORT INFORMATION
  Report Type: 
  Country: None (occurrence: None)
  Receive Date: 20120207
  Receipt Date: 20120131
  Transmission Date: 20120608
  Serious: Yes (Hospitalization, Other)
  Sender: FDA-Public Use
  Company Number: 2011SP033003

PATIENT
  Age: 45 Year
  Sex: Female

DRUGS (1)
  1. DESOGESTREL AND ETHINYL ESTRADIOL [Suspect]
     Indication: CONTRACEPTION
     Dates: start: 20070206, end: 20080301

REACTIONS (18)
  - SPINAL CORD INFARCTION [None]
  - PERONEAL NERVE PALSY [None]
  - OVARIAN CYST [None]
  - MENTAL DISORDER [None]
  - DEPRESSION [None]
  - ABDOMINAL PAIN [None]
  - MYOPATHY [None]
  - PANIC DISORDER [None]
  - AGORAPHOBIA [None]
  - PARESIS [None]
  - URINARY RETENTION [None]
  - HYPOAESTHESIA [None]
  - ANXIETY [None]
  - PAIN IN EXTREMITY [None]
  - PAIN [None]
  - BACK PAIN [None]
  - MUSCLE SPASMS [None]
  - GENERALISED ANXIETY DISORDER [None]
